FAERS Safety Report 11531554 (Version 2)
Quarter: 2015Q3

REPORT INFORMATION
  Report Type: Spontaneous
  Country: DE (occurrence: DE)
  Receive Date: 20150921
  Receipt Date: 20150923
  Transmission Date: 20151125
  Serious: Yes (Hospitalization, Other)
  Sender: FDA-Public Use
  Company Number: DE-009507513-2009-195710-NL

PATIENT
  Age: 29 Year
  Sex: Female

DRUGS (1)
  1. IMPLANON [Suspect]
     Active Substance: ETONOGESTREL
     Indication: CONTRACEPTION
     Dosage: IMPLANON ROD INSERTED
     Route: 058
     Dates: start: 2003

REACTIONS (6)
  - Amenorrhoea [Unknown]
  - Unintended pregnancy [Recovered/Resolved]
  - Menstruation irregular [Not Recovered/Not Resolved]
  - Medical device complication [Not Recovered/Not Resolved]
  - Abortion spontaneous [Unknown]
  - Pregnancy with implant contraceptive [Recovered/Resolved]

NARRATIVE: CASE EVENT DATE: 2003
